FAERS Safety Report 7046973-2 (Version None)
Quarter: 2010Q4

REPORT INFORMATION
  Report Type: 
  Country: None (occurrence: None)
  Receive Date: 20101015
  Receipt Date: 20101004
  Transmission Date: 20110411
  Serious: Yes (Other)
  Sender: FDA-Public Use
  Company Number: US-WYE-H17978810

PATIENT
  Sex: Female
  Weight: 71.73 kg

DRUGS (9)
  1. EFFEXOR XR [Suspect]
     Indication: ANXIETY
     Route: 048
     Dates: start: 20060101
  2. EFFEXOR XR [Suspect]
     Dosage: TITRATED DOSE UP FROM ^37 MG^ TO 75 MG TO 150 MG, FREQUENCY UNKNOWN
     Route: 048
  3. EFFEXOR XR [Suspect]
     Dosage: GRADUALLY DECREASING THE DOSE OVER ABOUT 8 WEEKS
     Dates: start: 20090101
  4. EFFEXOR XR [Suspect]
     Dosage: WENT FROM 75 MG TO 37 MG, THEN WAS OPENING THE CAPSULES AND TAKING A CERTAIN NUMBER OF BEADS
     Route: 048
     Dates: end: 20100301
  5. SYNTHROID [Concomitant]
     Dosage: UNKNOWN
     Dates: start: 20090101
  6. VITAMINS [Concomitant]
  7. CALCIUM [Concomitant]
  8. PROMETRIUM [Concomitant]
     Indication: HORMONE REPLACEMENT THERAPY
  9. ESTRADIOL [Concomitant]
     Indication: HORMONE REPLACEMENT THERAPY

REACTIONS (13)
  - ARRHYTHMIA [None]
  - BLOOD PRESSURE INCREASED [None]
  - BURNING SENSATION [None]
  - CONSTIPATION [None]
  - DIARRHOEA [None]
  - DRUG WITHDRAWAL SYNDROME [None]
  - HEADACHE [None]
  - NAUSEA [None]
  - NEUROPATHY PERIPHERAL [None]
  - PALPITATIONS [None]
  - VENTRICULAR EXTRASYSTOLES [None]
  - WEIGHT INCREASED [None]
  - WRONG TECHNIQUE IN DRUG USAGE PROCESS [None]
